FAERS Safety Report 6430229-2 (Version None)
Quarter: 2009Q4

REPORT INFORMATION
  Report Type: 
  Country: None (occurrence: None)
  Receive Date: 20091106
  Receipt Date: 20091023
  Transmission Date: 20100525
  Serious: Yes (Other)
  Sender: FDA-Public Use
  Company Number: US-AVENTIS-200917792US

PATIENT
  Sex: Female
  Weight: 101 kg

DRUGS (10)
  1. LANTUS [Suspect]
     Dosage: DOSE: 33 UNITS AM/37 UNITS PM
     Route: 058
     Dates: start: 20050101
  2. LOPRESSOR [Concomitant]
     Indication: BLOOD PRESSURE
  3. LISINOPRIL [Concomitant]
  4. LOVASTATIN [Concomitant]
  5. FUROSEMIDE [Concomitant]
  6. BABY ASPIRIN [Concomitant]
  7. ASACOL [Concomitant]
     Dosage: DOSE: 3 TABLETS AT 500
  8. ASCORBIC ACID [Concomitant]
  9. MULTIVITAMINS WITH MINERALS        /90003801/ [Concomitant]
     Dosage: DOSE: UNK
  10. HUMALOG [Concomitant]
     Dosage: DOSE: SLIDING SCALE

REACTIONS (3)
  - FATIGUE [None]
  - HYPOGLYCAEMIC COMA [None]
  - WEIGHT INCREASED [None]
